FAERS Safety Report 5892906-1 (Version None)
Quarter: 2008Q3

REPORT INFORMATION
  Report Type: 
  Country: None (occurrence: None)
  Receive Date: 20080923
  Receipt Date: 20080918
  Transmission Date: 20090109
  Serious: Yes (Other)
  Sender: FDA-Public Use
  Company Number: JP-AVENTIS-200812939JP

PATIENT

DRUGS (2)
  1. TAXOTERE [Suspect]
  2. TAXOTERE [Suspect]

REACTIONS (1)
  - LARYNGEAL OEDEMA [None]
